FAERS Safety Report 4763568-1 (Version None)
Quarter: 2005Q3

REPORT INFORMATION
  Report Type: 
  Country: None (occurrence: None)
  Receive Date: 20050901
  Receipt Date: 20050720
  Transmission Date: 20060218
  Serious: No
  Sender: FDA-Public Use
  Company Number: 200511464BWH

PATIENT
  Sex: Male

DRUGS (1)
  1. LEVITRA [Suspect]
     Indication: ERECTILE DYSFUNCTION
     Dosage: 20MG TOTAL DAILY ORAL
     Route: 048

REACTIONS (2)
  - DRUG INEFFECTIVE [None]
  - NO ADVERSE DRUG EFFECT [None]
